FAERS Safety Report 17354708 (Version 1)
Quarter: 2020Q1

REPORT INFORMATION
  Report Type: Spontaneous
  Country: SE (occurrence: SE)
  Receive Date: 20200131
  Receipt Date: 20200131
  Transmission Date: 20200409
  Serious: Yes (Hospitalization)
  Sender: FDA-Public Use
  Company Number: SE-MYLANLABS-2020M1010633

PATIENT
  Age: 36 Year
  Sex: Female

DRUGS (10)
  1. FURIX [Concomitant]
     Route: 048
     Dates: start: 20191016
  2. DULOXETINE. [Concomitant]
     Active Substance: DULOXETINE
     Dosage: 1 DOSAGE FORM, QD
     Route: 048
     Dates: start: 20181206
  3. ESOMEPRAZOLE. [Concomitant]
     Active Substance: ESOMEPRAZOLE MAGNESIUM
     Route: 048
     Dates: start: 20180215
  4. ALVEDON [Concomitant]
     Active Substance: ACETAMINOPHEN
     Dosage: 1 - 2 TABLETTER VB MAX 8/DAG
     Route: 048
     Dates: start: 20171225
  5. MIRENA [Concomitant]
     Active Substance: LEVONORGESTREL
     Route: 015
     Dates: start: 20190221
  6. CYKLOKAPRON [Concomitant]
     Active Substance: TRANEXAMIC ACID
     Dosage: 1 - 2 VB MAX 8/DAG
     Route: 048
     Dates: start: 20190221
  7. GABAPENTIN. [Concomitant]
     Active Substance: GABAPENTIN
     Route: 048
     Dates: start: 20191016
  8. DULOXETINE. [Concomitant]
     Active Substance: DULOXETINE
     Dosage: 60 MILLIGRAM
     Dates: start: 20171007
  9. BUPRENORPHINE. [Suspect]
     Active Substance: BUPRENORPHINE
     Indication: DRUG DEPENDENCE
     Dosage: UPPTRAPPNINGSDOS TILL 5 MG DAGLIGEN
  10. IMOVANE [Concomitant]
     Active Substance: ZOPICLONE
     Dosage: 1 TABL TN VB

REACTIONS (2)
  - Skin ulcer [Not Recovered/Not Resolved]
  - Oedema peripheral [Not Recovered/Not Resolved]

NARRATIVE: CASE EVENT DATE: 20191014
